FAERS Safety Report 5136648-9 (Version None)
Quarter: 2006Q4

REPORT INFORMATION
  Report Type: 
  Country: None (occurrence: None)
  Receive Date: 20061023
  Receipt Date: 20061009
  Transmission Date: 20070319
  Serious: Yes (Hospitalization, Other)
  Sender: FDA-Public Use
  Company Number: 2006125488

PATIENT
  Age: 59 Year
  Sex: Female

DRUGS (13)
  1. LYRICA [Suspect]
     Indication: PAIN IN EXTREMITY
     Dosage: 150 MG (75 MG, 2 IN 1 D)
     Dates: start: 20061005
  2. MS CONTIN (MORPHINE SULFATEP [Concomitant]
  3. PREDNISONE TAB [Concomitant]
  4. ALTACE [Concomitant]
  5. EFFEXOR [Concomitant]
  6. CYMBALTA [Concomitant]
  7. OSCAL (CALCIUM CARBONATE) [Concomitant]
  8. TOPAMAX [Concomitant]
  9. ACTONEL [Concomitant]
  10. CELEBREX [Concomitant]
  11. LOPRESSOR [Concomitant]
  12. SULFASALAZINE [Concomitant]
  13. LASIX [Concomitant]

REACTIONS (1)
  - RENAL FAILURE [None]
